FAERS Safety Report 6821379-7 (Version None)
Quarter: 2010Q3

REPORT INFORMATION
  Report Type: 
  Country: None (occurrence: None)
  Receive Date: 20100707
  Receipt Date: 20080911
  Transmission Date: 20110219
  Serious: No
  Sender: FDA-Public Use
  Company Number: US-PFIZER INC-2008075967

PATIENT
  Sex: Female
  Weight: 50.909 kg

DRUGS (5)
  1. ZOLOFT [Suspect]
     Indication: ANXIETY
     Route: 048
     Dates: start: 20030901
  2. ZOLOFT [Suspect]
     Indication: STRESS
  3. SYNTHROID [Suspect]
     Indication: HYPOTHYROIDISM
     Dates: start: 20080501, end: 20080801
  4. NASONEX [Concomitant]
     Indication: HYPERSENSITIVITY
  5. VITAMINS [Concomitant]

REACTIONS (3)
  - ALOPECIA [None]
  - STRESS [None]
  - THYROID FUNCTION TEST ABNORMAL [None]
